FAERS Safety Report 9209391 (Version 1)
Quarter: 2013Q1

REPORT INFORMATION
  Report Type: Spontaneous
  Country: US (occurrence: None)
  Receive Date: 20120817
  Receipt Date: 20120817
  Transmission Date: 20140127
  Serious: Yes (Other)
  Sender: FDA-Public Use
  Company Number: 122824

PATIENT
  Age: 42 Year
  Sex: Female
  Weight: 89.81 kg

DRUGS (1)
  1. CYTARABINE [Suspect]
     Indication: ACUTE MYELOID LEUKAEMIA
     Dates: start: 20110506, end: 20110512

REACTIONS (1)
  - Hyperbilirubinaemia [None]
